FAERS Safety Report 6670271-X (Version None)
Quarter: 2010Q2

REPORT INFORMATION
  Report Type: 
  Country: None (occurrence: None)
  Receive Date: 20100405
  Receipt Date: 20100317
  Transmission Date: 20101027
  Serious: Yes (Other)
  Sender: FDA-Public Use
  Company Number: BVT-000511

PATIENT

DRUGS (2)
  1. KINERET [Suspect]
     Indication: JUVENILE ARTHRITIS
     Dosage: (1 MG/KG)
  2. PREDNISOLONE [Concomitant]

REACTIONS (2)
  - ACUTE PRERENAL FAILURE [None]
  - GASTROENTERITIS [None]
